FAERS Safety Report 8025311 (Version 2)
Quarter: 2014Q2

REPORT INFORMATION
  Report Type: Spontaneous
  Country: US (occurrence: US)
  Receive Date: 20110707
  Receipt Date: 20140618
  Transmission Date: 20141212
  Serious: No
  Sender: FDA-Public Use
  Company Number: US-PFIZER INC-2011151712

PATIENT
  Age: 40 Year
  Sex: Male

DRUGS (2)
  1. DILANTIN-125 [Suspect]
     Dosage: 500 MG, DAILY
     Route: 048
     Dates: start: 201009
  2. TEGRETOL XR [Concomitant]
     Indication: EPILEPSY
     Dosage: 400 MG, 3X/DAY
     Dates: start: 201009

REACTIONS (3)
  - Dizziness [Not Recovered/Not Resolved]
  - Somnolence [Not Recovered/Not Resolved]
  - Drug effect increased [Unknown]
